FAERS Safety Report 9664471 (Version 4)
Quarter: 2015Q1

REPORT INFORMATION
  Report Type: Spontaneous
  Country: FR (occurrence: FR)
  Receive Date: 20131101
  Receipt Date: 20150316
  Transmission Date: 20150721
  Serious: Yes (Hospitalization)
  Sender: FDA-Public Use
  Company Number: FR-SA-2013SA107582

PATIENT
  Age: 68 Year
  Sex: Female
  Weight: 86 kg

DRUGS (9)
  1. LOVENOX [Suspect]
     Active Substance: ENOXAPARIN SODIUM
     Indication: THROMBOSIS PROPHYLAXIS
     Route: 058
     Dates: start: 20131002, end: 20131002
  2. AUGMENTIN [Concomitant]
     Active Substance: AMOXICILLIN\CLAVULANATE POTASSIUM
  3. VANCOMYCIN [Concomitant]
     Active Substance: VANCOMYCIN
  4. FLUCONAZOLE. [Concomitant]
     Active Substance: FLUCONAZOLE
  5. AMIKACIN [Concomitant]
     Active Substance: AMIKACIN
  6. LOVENOX [Suspect]
     Active Substance: ENOXAPARIN SODIUM
     Indication: THROMBOSIS PROPHYLAXIS
     Route: 058
     Dates: start: 20130926, end: 20130926
  7. MEROPENEM. [Concomitant]
     Active Substance: MEROPENEM
  8. HEPARINE CHOAY [Suspect]
     Active Substance: HEPARIN SODIUM
     Indication: JUGULAR VEIN THROMBOSIS
     Route: 042
     Dates: start: 20131003, end: 20131011
  9. GENTAMICIN. [Concomitant]
     Active Substance: GENTAMICIN

REACTIONS (7)
  - Adrenal cortex necrosis [Recovered/Resolved with Sequelae]
  - Platelet count decreased [Not Recovered/Not Resolved]
  - Hypokalaemia [Not Recovered/Not Resolved]
  - Pulmonary embolism [Recovered/Resolved with Sequelae]
  - Heparin-induced thrombocytopenia [Recovered/Resolved]
  - Deep vein thrombosis [Recovered/Resolved with Sequelae]
  - Acute coronary syndrome [Not Recovered/Not Resolved]

NARRATIVE: CASE EVENT DATE: 20131010
